FAERS Safety Report 25378728 (Version 1)
Quarter: 2025Q2

REPORT INFORMATION
  Report Type: Spontaneous
  Country: US (occurrence: None)
  Receive Date: 20250529
  Receipt Date: 20250529
  Transmission Date: 20250716
  Serious: Yes (Death)
  Sender: FDA-CTU
  Company Number: None

PATIENT
  Age: 85 Year
  Sex: Female

DRUGS (11)
  1. LOKELMA [Suspect]
     Active Substance: SODIUM ZIRCONIUM CYCLOSILICATE
     Indication: Hyperkalaemia
     Dosage: FREQUENCY : DAILY;?
     Route: 048
     Dates: start: 20240601
  2. ATORVASTATIN [Concomitant]
     Active Substance: ATORVASTATIN
  3. CARVEDILOL [Concomitant]
     Active Substance: CARVEDILOL
  4. PREDNISONE [Concomitant]
     Active Substance: PREDNISONE
  5. PRIMIDONE [Concomitant]
     Active Substance: PRIMIDONE
  6. VITAMIN D [Concomitant]
     Active Substance: VITAMIN D NOS
  7. DONEPEZIL [Concomitant]
     Active Substance: DONEPEZIL
  8. memantine er [Concomitant]
  9. CLONAZEPAM [Concomitant]
     Active Substance: CLONAZEPAM
  10. CHOLESTYRAMINE [Concomitant]
     Active Substance: CHOLESTYRAMINE
  11. FUROSEMIDE [Concomitant]
     Active Substance: FUROSEMIDE

REACTIONS (1)
  - Death [None]
